FAERS Safety Report 6716998-2 (Version None)
Quarter: 2010Q2

REPORT INFORMATION
  Report Type: 
  Country: None (occurrence: None)
  Receive Date: 20100510
  Receipt Date: 20100503
  Transmission Date: 20101027
  Serious: Yes (Other)
  Sender: FDA-Public Use
  Company Number: US-JNJFOC-20100301989

PATIENT
  Sex: Female
  Weight: 45.36 kg

DRUGS (15)
  1. DURAGESIC-100 [Suspect]
     Indication: OSTEOPOROSIS
     Route: 062
  2. DURAGESIC-100 [Suspect]
     Route: 062
  3. DURAGESIC-100 [Suspect]
     Route: 062
  4. DURAGESIC-100 [Suspect]
     Route: 062
  5. FENTANYL CITRATE [Suspect]
     Indication: OSTEOPOROSIS
     Route: 062
  6. DURAGESIC-100 [Suspect]
     Route: 062
  7. LIDODERM [Concomitant]
     Indication: PAIN
     Route: 062
  8. LEVOXYL [Concomitant]
     Indication: THYROID DISORDER
     Route: 048
  9. MEDROXYPROGESTERONE [Concomitant]
     Indication: OSTEOPOROSIS
     Route: 048
  10. PREMARIN [Concomitant]
     Indication: OSTEOPOROSIS
     Route: 048
  11. SEREVENT [Concomitant]
     Indication: CHRONIC OBSTRUCTIVE PULMONARY DISEASE
     Dosage: 2 PUFFS
     Route: 055
  12. ASMANEX TWISTHALER [Concomitant]
     Indication: CHRONIC OBSTRUCTIVE PULMONARY DISEASE
     Dosage: 2 PUFFS
     Route: 055
  13. FOSAMAX [Concomitant]
     Indication: OSTEOPOROSIS
     Route: 048
  14. SPIRIVA [Concomitant]
     Indication: CHRONIC OBSTRUCTIVE PULMONARY DISEASE
     Dosage: 1 PUFF
     Route: 055
  15. FENTORA [Concomitant]
     Indication: PAIN
     Route: 050

REACTIONS (7)
  - FEELING JITTERY [None]
  - HYPERTENSION [None]
  - INSOMNIA [None]
  - OSTEOPOROSIS [None]
  - PRURITUS GENITAL [None]
  - SPINAL FRACTURE [None]
  - WITHDRAWAL SYNDROME [None]
